FAERS Safety Report 10917140 (Version 1)
Quarter: 2015Q1

REPORT INFORMATION
  Report Type: Spontaneous
  Country: US (occurrence: US)
  Receive Date: 20150316
  Receipt Date: 20150316
  Transmission Date: 20150721
  Serious: No
  Sender: FDA-Public Use
  Company Number: US-009507513-1503USA002392

PATIENT
  Sex: Female
  Weight: 54.42 kg

DRUGS (1)
  1. IMPLANON [Suspect]
     Active Substance: ETONOGESTREL
     Indication: CONTRACEPTION
     Dosage: 1 IMPLANT/ 3 YEARS
     Route: 059
     Dates: start: 20120213

REACTIONS (4)
  - Menstruation delayed [Unknown]
  - Metrorrhagia [Recovered/Resolved]
  - Incorrect drug administration duration [Unknown]
  - Medication error [Unknown]

NARRATIVE: CASE EVENT DATE: 20150213
